FAERS Safety Report 5878013-2 (Version None)
Quarter: 2008Q3

REPORT INFORMATION
  Report Type: 
  Country: None (occurrence: None)
  Receive Date: 20080911
  Receipt Date: 20080904
  Transmission Date: 20090109
  Serious: Yes (Life-Threatening, Hospitalization)
  Sender: FDA-Public Use
  Company Number: NL-TEVA-176973ISR

PATIENT
  Sex: Male
  Weight: 84 kg

DRUGS (2)
  1. BACTRIM [Suspect]
     Indication: CYSTITIS
     Dates: start: 20080811, end: 20080814
  2. LOSARTAN W/HYDROCHLOROTHIAZIDE (FORTZAAR) [Concomitant]
     Dosage: 100/25MG

REACTIONS (2)
  - PSYCHOTIC DISORDER [None]
  - RHABDOMYOLYSIS [None]
